FAERS Safety Report 15372783 (Version 1)
Quarter: 2018Q3

REPORT INFORMATION
  Report Type: Spontaneous
  Country: US (occurrence: US)
  Receive Date: 20180912
  Receipt Date: 20180912
  Transmission Date: 20181010
  Serious: Yes (Life-Threatening, Hospitalization, Other)
  Sender: FDA-Public Use
  Company Number: US-LUPIN PHARMACEUTICALS INC.-2018-06368

PATIENT
  Age: 17 Year
  Sex: Male

DRUGS (1)
  1. METFORMIN [Suspect]
     Active Substance: METFORMIN HYDROCHLORIDE
     Indication: SUICIDE ATTEMPT
     Dosage: 10000 MG, SINGLE (20 TABLETS) (0.173 G/KG BODY WEIGHT)
     Route: 048

REACTIONS (10)
  - Acute kidney injury [Recovered/Resolved]
  - Abdominal pain [Unknown]
  - Depressed level of consciousness [Recovered/Resolved]
  - Overdose [Unknown]
  - Lactic acidosis [Recovered/Resolved]
  - Vomiting [Unknown]
  - Heart injury [Recovered/Resolved]
  - Hypoglycaemia [Recovered/Resolved]
  - Aggression [Unknown]
  - Toxicity to various agents [Recovering/Resolving]
